FAERS Safety Report 15943183 (Version 4)
Quarter: 2021Q3

REPORT INFORMATION
  Report Type: Spontaneous
  Country: US (occurrence: US)
  Receive Date: 20190210
  Receipt Date: 20210805
  Transmission Date: 20211014
  Serious: Yes (Hospitalization, Disabling, Other)
  Sender: FDA-Public Use
  Company Number: US-ASTRAZENECA-2019SE10878

PATIENT
  Age: 14766 Day
  Sex: Female
  Weight: 94.3 kg

DRUGS (59)
  1. PRILOSEC [Suspect]
     Active Substance: OMEPRAZOLE MAGNESIUM
     Dosage: GENERIC
     Route: 065
  2. PRILOSEC OTC [Suspect]
     Active Substance: OMEPRAZOLE MAGNESIUM
     Route: 048
  3. PROTONIX [Suspect]
     Active Substance: PANTOPRAZOLE SODIUM
     Indication: GASTROOESOPHAGEAL REFLUX DISEASE
     Route: 065
     Dates: start: 201210, end: 201211
  4. PROTONIX [Suspect]
     Active Substance: PANTOPRAZOLE SODIUM
     Indication: GASTROOESOPHAGEAL REFLUX DISEASE
     Route: 065
     Dates: start: 201408
  5. TRAMADOL. [Concomitant]
     Active Substance: TRAMADOL
     Indication: PAIN
     Dates: start: 201508
  6. GENTAMICIN. [Concomitant]
     Active Substance: GENTAMICIN
     Indication: INFECTION
     Dates: start: 201606
  7. MIDODRINE [Concomitant]
     Active Substance: MIDODRINE
  8. NEXIUM [Suspect]
     Active Substance: ESOMEPRAZOLE MAGNESIUM
     Indication: GASTROOESOPHAGEAL REFLUX DISEASE
     Route: 048
     Dates: start: 2007, end: 2018
  9. PREVACID [Suspect]
     Active Substance: LANSOPRAZOLE
     Dosage: GENERIC
     Route: 065
  10. CIPROFLOXACIN. [Concomitant]
     Active Substance: CIPROFLOXACIN
     Indication: INFECTION
     Dates: start: 200808
  11. TRAMADOL. [Concomitant]
     Active Substance: TRAMADOL
     Indication: PAIN
     Dates: start: 201402
  12. FUROSEMIDE. [Concomitant]
     Active Substance: FUROSEMIDE
     Indication: DIURETIC THERAPY
     Dates: start: 201106
  13. FUROSEMIDE. [Concomitant]
     Active Substance: FUROSEMIDE
     Indication: DIURETIC THERAPY
     Dates: start: 201511
  14. VITAMIN E [Concomitant]
     Active Substance: .ALPHA.-TOCOPHEROL
     Indication: VITAMIN E DEFICIENCY
     Dates: start: 2009
  15. GABAPENTIN. [Concomitant]
     Active Substance: GABAPENTIN
  16. NEXIUM [Suspect]
     Active Substance: ESOMEPRAZOLE MAGNESIUM
     Indication: GASTROOESOPHAGEAL REFLUX DISEASE
     Route: 048
     Dates: start: 20070622
  17. TRAMADOL. [Concomitant]
     Active Substance: TRAMADOL
     Indication: PAIN
     Dates: start: 201412
  18. ASPIRIN. [Concomitant]
     Active Substance: ASPIRIN
     Indication: ANTICOAGULANT THERAPY
     Dates: start: 2018
  19. NEXIUM [Suspect]
     Active Substance: ESOMEPRAZOLE MAGNESIUM
     Indication: GASTROOESOPHAGEAL REFLUX DISEASE
     Route: 048
  20. NEXIUM 24HR [Suspect]
     Active Substance: ESOMEPRAZOLE MAGNESIUM
     Indication: GASTROOESOPHAGEAL REFLUX DISEASE
     Route: 048
     Dates: start: 2007, end: 2018
  21. DEXILANT [Suspect]
     Active Substance: DEXLANSOPRAZOLE
     Route: 065
  22. DEXILANT [Suspect]
     Active Substance: DEXLANSOPRAZOLE
     Dosage: GENERIC
     Route: 065
  23. PREVACID 24 HR [Suspect]
     Active Substance: LANSOPRAZOLE
     Route: 065
  24. AZITHROMYCIN ANHYDROUS. [Concomitant]
     Active Substance: AZITHROMYCIN ANHYDROUS
     Indication: INFECTION
     Dates: start: 201709
  25. TRAMADOL. [Concomitant]
     Active Substance: TRAMADOL
     Indication: PAIN
     Dates: start: 201410
  26. AMOXICILLIN. [Concomitant]
     Active Substance: AMOXICILLIN
     Indication: INFECTION
     Dates: start: 200901
  27. GENTAMICIN. [Concomitant]
     Active Substance: GENTAMICIN
     Indication: INFECTION
     Dates: start: 201505
  28. RENVELA [Concomitant]
     Active Substance: SEVELAMER CARBONATE
  29. PROTONIX [Suspect]
     Active Substance: PANTOPRAZOLE SODIUM
     Indication: GASTROOESOPHAGEAL REFLUX DISEASE
     Dosage: GENERIC
     Route: 065
  30. AVELOX [Concomitant]
     Active Substance: MOXIFLOXACIN HYDROCHLORIDE
     Route: 048
     Dates: start: 20091019
  31. AMOXICILLIN. [Concomitant]
     Active Substance: AMOXICILLIN
     Indication: INFECTION
     Dates: start: 200909
  32. MAGNESIUM [Concomitant]
     Active Substance: MAGNESIUM
     Indication: MAGNESIUM DEFICIENCY
     Dates: start: 2007
  33. WARFARIN [Concomitant]
     Active Substance: WARFARIN
  34. DOXYCYCLINE. [Concomitant]
     Active Substance: DOXYCYCLINE
  35. DICYCLOMINE [Concomitant]
     Active Substance: DICYCLOMINE HYDROCHLORIDE
     Route: 048
     Dates: start: 20091020
  36. PROMETHAZINE [Concomitant]
     Active Substance: PROMETHAZINE HYDROCHLORIDE
     Route: 048
     Dates: start: 20091031
  37. ALPRAZOLAM. [Concomitant]
     Active Substance: ALPRAZOLAM
     Route: 048
     Dates: start: 20091125
  38. AZITHROMYCIN ANHYDROUS. [Concomitant]
     Active Substance: AZITHROMYCIN ANHYDROUS
     Indication: INFECTION
     Dates: start: 200810
  39. TRIMETHOPRIM/SULFAMETHOXAZOLE [Concomitant]
     Active Substance: SULFAMETHOXAZOLE\TRIMETHOPRIM
     Indication: INFECTION
     Dates: start: 201112
  40. VITAMIN D [Concomitant]
     Active Substance: VITAMIN D NOS
     Indication: VITAMIN D DEFICIENCY
     Dates: start: 2009
  41. ZANTAC [Concomitant]
     Active Substance: RANITIDINE HYDROCHLORIDE
  42. LEVOTHYROXINE. [Concomitant]
     Active Substance: LEVOTHYROXINE
  43. NEXIUM [Suspect]
     Active Substance: ESOMEPRAZOLE MAGNESIUM
     Indication: GASTROOESOPHAGEAL REFLUX DISEASE
     Route: 048
     Dates: start: 1996
  44. PREVACID [Suspect]
     Active Substance: LANSOPRAZOLE
     Route: 065
  45. AMOXICILLIN. [Concomitant]
     Active Substance: AMOXICILLIN
     Indication: INFECTION
     Dates: start: 201012
  46. TUMS [Concomitant]
     Active Substance: CALCIUM CARBONATE
     Dates: start: 2000
  47. NEXIUM [Suspect]
     Active Substance: ESOMEPRAZOLE MAGNESIUM
     Indication: GASTROOESOPHAGEAL REFLUX DISEASE
     Dosage: GENERIC
     Route: 065
  48. NEXIUM [Suspect]
     Active Substance: ESOMEPRAZOLE MAGNESIUM
     Indication: GASTROOESOPHAGEAL REFLUX DISEASE
     Dosage: GENERIC
     Route: 065
     Dates: start: 201502, end: 201512
  49. PRILOSEC [Suspect]
     Active Substance: OMEPRAZOLE MAGNESIUM
     Route: 048
  50. METOCLOPRAMIDE. [Concomitant]
     Active Substance: METOCLOPRAMIDE
     Route: 048
     Dates: start: 20091020
  51. AZITHROMYCIN ANHYDROUS. [Concomitant]
     Active Substance: AZITHROMYCIN ANHYDROUS
     Indication: INFECTION
     Dates: start: 200706
  52. FLUOXETINE [Concomitant]
     Active Substance: FLUOXETINE HYDROCHLORIDE
     Indication: ANTIDEPRESSANT THERAPY
     Dates: start: 201803
  53. CIPROFLOXACIN. [Concomitant]
     Active Substance: CIPROFLOXACIN
     Indication: INFECTION
     Dates: start: 200710
  54. AMOXICILLIN. [Concomitant]
     Active Substance: AMOXICILLIN
     Indication: INFECTION
     Dates: start: 201606
  55. TRIMETHOPRIM/SULFAMETHOXAZOLE [Concomitant]
     Active Substance: SULFAMETHOXAZOLE\TRIMETHOPRIM
     Indication: INFECTION
     Dates: start: 201311
  56. ACETAMINOPHEN. [Concomitant]
     Active Substance: ACETAMINOPHEN
     Indication: PAIN
     Dates: start: 2000
  57. PEPTO?BISMOL [Concomitant]
     Active Substance: BISMUTH SUBSALICYLATE
     Dates: start: 2000
  58. TRIAMCINOLONE [Concomitant]
     Active Substance: TRIAMCINOLONE
  59. TOPIRAMATE. [Concomitant]
     Active Substance: TOPIRAMATE

REACTIONS (7)
  - End stage renal disease [Not Recovered/Not Resolved]
  - Chronic kidney disease [Unknown]
  - Rebound acid hypersecretion [Unknown]
  - Renal failure [Unknown]
  - Nephrogenic anaemia [Unknown]
  - Acute kidney injury [Unknown]
  - Renal injury [Unknown]

NARRATIVE: CASE EVENT DATE: 20010712
